FAERS Safety Report 12239041 (Version 8)
Quarter: 2016Q4

REPORT INFORMATION
  Report Type: Spontaneous
  Country: US (occurrence: US)
  Receive Date: 20160405
  Receipt Date: 20161006
  Transmission Date: 20170207
  Serious: Yes (Death, Hospitalization)
  Sender: FDA-Public Use
  Company Number: US-ACTELION PHARMACEUTICALS US, INC.-A-US2016-133043

PATIENT
  Age: 69 Year
  Sex: Female

DRUGS (7)
  1. VELETRI [Suspect]
     Active Substance: EPOPROSTENOL
     Indication: PULMONARY ARTERIAL HYPERTENSION
     Dosage: 17 NG/KG, PER MIN
     Route: 042
     Dates: start: 20151116, end: 201609
  2. HYDROXYZINE [Concomitant]
     Active Substance: HYDROXYZINE\HYDROXYZINE HYDROCHLORIDE
     Dosage: 25 MG, QPM
  3. PAROXETINE. [Concomitant]
     Active Substance: PAROXETINE
     Dosage: 40 MG, QD
  4. RIFAXIMIN [Concomitant]
     Active Substance: RIFAXIMIN
     Dosage: 450 MG, BID
  5. SPIRIVA [Concomitant]
     Active Substance: TIOTROPIUM BROMIDE MONOHYDRATE
     Dosage: 18 MCG, QD
     Route: 055
  6. SILDENAFIL. [Concomitant]
     Active Substance: SILDENAFIL
     Indication: PULMONARY ARTERIAL HYPERTENSION
     Dosage: 20 MG, TID
  7. GABAPENTIN. [Concomitant]
     Active Substance: GABAPENTIN
     Dosage: 600 MG, QD

REACTIONS (16)
  - Cataract [Unknown]
  - Cataract operation [Unknown]
  - Weight decreased [Unknown]
  - Dyspnoea [Unknown]
  - Death [Fatal]
  - Pulmonary arterial hypertension [Unknown]
  - Nausea [Unknown]
  - Hypoxia [Not Recovered/Not Resolved]
  - Catheter site pruritus [Unknown]
  - Decreased appetite [Not Recovered/Not Resolved]
  - Fatigue [Unknown]
  - Hepatic pain [Unknown]
  - Dyspepsia [Unknown]
  - Irritable bowel syndrome [Unknown]
  - Device dislocation [Unknown]
  - Diarrhoea [Unknown]

NARRATIVE: CASE EVENT DATE: 20160328
